FAERS Safety Report 9000316 (Version 1)
Quarter: 2012Q4

REPORT INFORMATION
  Report Type: Spontaneous
  Country: US (occurrence: None)
  Receive Date: 20121221
  Receipt Date: 20121221
  Transmission Date: 20130627
  Serious: Yes (Hospitalization)
  Sender: FDA-Public Use
  Company Number: UTC-026819

PATIENT
  Age: 69 Year
  Sex: Female

DRUGS (1)
  1. TYVASO [Suspect]
     Indication: PRIMARY PULMONARY HYPERTENSION
     Route: 055
     Dates: start: 20121202, end: 20121205

REACTIONS (1)
  - Influenza [None]
